FAERS Safety Report 20791331 (Version 1)
Quarter: 2022Q2

REPORT INFORMATION
  Report Type: Spontaneous
  Country: US (occurrence: US)
  Receive Date: 20220505
  Receipt Date: 20220505
  Transmission Date: 20220720
  Serious: No
  Sender: FDA-Public Use
  Company Number: US-PFIZER INC-202200036947

PATIENT
  Age: 72 Year
  Sex: Female
  Weight: 66.9 kg

DRUGS (1)
  1. PREMARIN [Suspect]
     Active Substance: ESTROGENS, CONJUGATED
     Dosage: 0.45 MG, WEEKLY
     Route: 048

REACTIONS (5)
  - Pain [Unknown]
  - Dyspareunia [Unknown]
  - Mood altered [Unknown]
  - Intentional product misuse [Unknown]
  - Off label use [Unknown]
